FAERS Safety Report 7782628-4 (Version None)
Quarter: 2011Q3

REPORT INFORMATION
  Report Type: 
  Country: None (occurrence: None)
  Receive Date: 20110927
  Receipt Date: 20110927
  Transmission Date: 20111222
  Serious: No
  Sender: FDA-Public Use
  Company Number: None

PATIENT
  Age: 76 Year
  Sex: Male
  Weight: 59.9 kg

DRUGS (1)
  1. AZATHIOPRINE [Suspect]
     Indication: RHEUMATOID ARTHRITIS
     Dosage: 200 MG EVERY DAY PO
     Route: 048
     Dates: start: 20101101, end: 20110516

REACTIONS (1)
  - PANCYTOPENIA [None]
